FAERS Safety Report 6361407-9 (Version None)
Quarter: 2009Q3

REPORT INFORMATION
  Report Type: 
  Country: None (occurrence: None)
  Receive Date: 20090918
  Receipt Date: 20090908
  Transmission Date: 20100115
  Serious: Yes (Other)
  Sender: FDA-Public Use
  Company Number: US-PFIZER INC-2009245851

PATIENT
  Sex: Female
  Weight: 74.83 kg

DRUGS (4)
  1. DETROL LA [Suspect]
     Indication: HYPERTONIC BLADDER
     Dates: start: 20090101, end: 20090721
  2. VALSARTAN [Concomitant]
     Dosage: 180 MG, UNK
  3. TRIAMTERENE AND HYDROCHLOROTHIAZIDE [Concomitant]
     Dosage: UNK
  4. VITAMINS [Concomitant]

REACTIONS (2)
  - DEMENTIA [None]
  - DIZZINESS [None]
